FAERS Safety Report 5828481-7 (Version None)
Quarter: 2008Q3

REPORT INFORMATION
  Report Type: 
  Country: None (occurrence: None)
  Receive Date: 20080731
  Receipt Date: 20080723
  Transmission Date: 20090109
  Serious: Yes (Hospitalization)
  Sender: FDA-Public Use
  Company Number: SE-WATSON-2008-04493

PATIENT
  Age: 28 Year
  Sex: Female

DRUGS (1)
  1. CLOMIPRAMINE HYDROCHLORIDE (WATSON LABORATORIES) [Suspect]
     Indication: SUICIDE ATTEMPT
     Dosage: 60 TABLETS, 4.5 GRAMS TOTAL

REACTIONS (2)
  - BEZOAR [None]
  - POISONING [None]
